FAERS Safety Report 6385924-0 (Version None)
Quarter: 2009Q4

REPORT INFORMATION
  Report Type: 
  Country: None (occurrence: None)
  Receive Date: 20091002
  Receipt Date: 20090109
  Transmission Date: 20100525
  Serious: No
  Sender: FDA-Public Use
  Company Number: US-ASTRAZENECA-2009UW00870

PATIENT
  Age: 56 Year
  Sex: Female

DRUGS (5)
  1. ARIMIDEX [Suspect]
     Dosage: UNKNOWN
     Route: 048
     Dates: start: 20080701
  2. TOPROL-XL [Concomitant]
     Route: 048
  3. DILTIAZEM [Concomitant]
  4. WARFARIN SODIUM [Concomitant]
  5. FUROSEMIDE [Concomitant]

REACTIONS (2)
  - NAIL DISCOLOURATION [None]
  - NAIL DISORDER [None]
